FAERS Safety Report 8217865-8 (Version None)
Quarter: 2012Q1

REPORT INFORMATION
  Report Type: 
  Country: None (occurrence: None)
  Receive Date: 20120319
  Receipt Date: 20120309
  Transmission Date: 20120608
  Serious: Yes (Hospitalization, Other)
  Sender: FDA-Public Use
  Company Number: US-BAYER-201014061NA

PATIENT
  Age: 38 Year
  Sex: Female

DRUGS (6)
  1. LOVENOX [Concomitant]
     Dosage: UNK
     Dates: start: 20090201
  2. ORTHO TRI-CYCLEN [Concomitant]
  3. COUMADIN [Concomitant]
     Dosage: UNK
     Dates: start: 20090201
  4. TRIVORA-21 [Concomitant]
     Dosage: UNK
     Dates: start: 20080101
  5. YASMIN [Suspect]
     Dosage: UNK
     Route: 048
     Dates: start: 20050101, end: 20090615
  6. ANTIBIOTICS [Concomitant]

REACTIONS (7)
  - CHOLECYSTECTOMY [None]
  - HYSTERECTOMY [None]
  - CHOLECYSTITIS CHRONIC [None]
  - ENDOMETRIOSIS [None]
  - THROMBOSIS [None]
  - PULMONARY EMBOLISM [None]
  - MENORRHAGIA [None]
